FAERS Safety Report 13058039 (Version 2)
Quarter: 2016Q4

REPORT INFORMATION
  Report Type: Spontaneous
  Country: GR (occurrence: GR)
  Receive Date: 20161223
  Receipt Date: 20161226
  Transmission Date: 20170207
  Serious: Yes (Other)
  Sender: FDA-Public Use
  Company Number: PHHY2016GR175651

PATIENT
  Age: 50 Year
  Sex: Female

DRUGS (3)
  1. EXJADE [Suspect]
     Active Substance: DEFERASIROX
     Indication: IRON OVERLOAD
     Dosage: 500X3 DF, UNK
     Route: 065
     Dates: start: 2011
  2. EXJADE [Suspect]
     Active Substance: DEFERASIROX
     Dosage: 40 MG/KG, UNK
     Route: 065
     Dates: start: 20160919
  3. EXJADE [Suspect]
     Active Substance: DEFERASIROX
     Dosage: 500X2 DF, UNK
     Route: 065

REACTIONS (1)
  - Albuminuria [Unknown]
